FAERS Safety Report 5213650-X (Version None)
Quarter: 2007Q1

REPORT INFORMATION
  Report Type: 
  Country: None (occurrence: None)
  Receive Date: 20070119
  Receipt Date: 20070108
  Transmission Date: 20070707
  Serious: Yes (Hospitalization)
  Sender: FDA-Public Use
  Company Number: FR-PFIZER INC-2007003834

PATIENT
  Age: 80 Year
  Sex: Male

DRUGS (3)
  1. NEURONTIN [Suspect]
     Indication: PAIN
     Dosage: TEXT:2 DF
     Route: 048
  2. ATARAX [Interacting]
     Indication: PRURITUS GENERALISED
     Dosage: TEXT:3 DF
     Route: 048
  3. ZANIDIP [Interacting]
     Dosage: TEXT:2 DF
     Route: 048

REACTIONS (2)
  - DRUG INTERACTION [None]
  - FALL [None]
